FAERS Safety Report 7709107-4 (Version None)
Quarter: 2011Q3

REPORT INFORMATION
  Report Type: 
  Country: None (occurrence: None)
  Receive Date: 20110825
  Receipt Date: 20110812
  Transmission Date: 20111222
  Serious: Yes (Other)
  Sender: FDA-Public Use
  Company Number: PHHY2011BR73174

PATIENT
  Sex: Male

DRUGS (2)
  1. LOSARTAN POTASSIUM [Concomitant]
     Dosage: 50 MG, UNK
  2. DIOVAN [Suspect]

REACTIONS (2)
  - BEDRIDDEN [None]
  - CEREBROVASCULAR ACCIDENT [None]
